FAERS Safety Report 16469197 (Version 1)
Quarter: 2019Q2

REPORT INFORMATION
  Report Type: Other
  Country: CA (occurrence: CA)
  Receive Date: 20190624
  Receipt Date: 20190624
  Transmission Date: 20190711
  Serious: Yes (Other)
  Sender: FDA-Public Use
  Company Number: CA-APOTEX-2019AP016770

PATIENT
  Sex: Female

DRUGS (1)
  1. ANASTROZOLE. [Suspect]
     Active Substance: ANASTROZOLE
     Indication: ADJUVANT THERAPY
     Dosage: UNK
     Route: 065

REACTIONS (3)
  - Lung cancer metastatic [Unknown]
  - Off label use [Unknown]
  - Neoplasm progression [Unknown]
